FAERS Safety Report 13122344 (Version 2)
Quarter: 2017Q1

REPORT INFORMATION
  Report Type: Spontaneous
  Country: US (occurrence: US)
  Receive Date: 20170117
  Receipt Date: 20170224
  Transmission Date: 20170428
  Serious: Yes (Hospitalization, Other)
  Sender: FDA-Public Use
  Company Number: US-NOVOPROD-526468

PATIENT
  Age: 58 Year
  Sex: Female
  Weight: 92.52 kg

DRUGS (2)
  1. METFORMIN [Concomitant]
     Active Substance: METFORMIN HYDROCHLORIDE
     Indication: DIABETES MELLITUS INADEQUATE CONTROL
     Dosage: UNKNOWN
  2. NOVOLIN 70/30 [Suspect]
     Active Substance: INSULIN HUMAN
     Indication: DIABETES MELLITUS INADEQUATE CONTROL
     Dosage: UNKNOWN
     Route: 058

REACTIONS (5)
  - Rheumatoid arthritis [Not Recovered/Not Resolved]
  - Pulmonary fibrosis [Not Recovered/Not Resolved]
  - Syncope [Not Recovered/Not Resolved]
  - Angina pectoris [Recovered/Resolved]
  - Glycosylated haemoglobin increased [Recovering/Resolving]

NARRATIVE: CASE EVENT DATE: 2007
